FAERS Safety Report 4752944-9 (Version None)
Quarter: 2005Q3

REPORT INFORMATION
  Report Type: 
  Country: None (occurrence: None)
  Receive Date: 20050823
  Receipt Date: 20050810
  Transmission Date: 20060218
  Serious: No
  Sender: FDA-Public Use
  Company Number: 05H-163-0302000-00

PATIENT
  Age: 22 Year
  Sex: Male

DRUGS (3)
  1. FENTANYL CITRATE [Suspect]
     Indication: SEDATION
     Dosage: 25 MCG, ONCE, INTRAVENOUS
     Route: 042
     Dates: start: 20050615, end: 20050615
  2. NITROUS OXIDE (NITROUS OXIDE) [Concomitant]
  3. OXYGEN (OXYGEN) [Concomitant]

REACTIONS (4)
  - GRAND MAL CONVULSION [None]
  - LARYNGOSPASM [None]
  - PULSE PRESSURE ABNORMAL [None]
  - SALIVARY HYPERSECRETION [None]
